FAERS Safety Report 9207118 (Version 2)
Quarter: 2013Q2

REPORT INFORMATION
  Report Type: Spontaneous
  Country: US (occurrence: US)
  Receive Date: 20130403
  Receipt Date: 20130607
  Transmission Date: 20140414
  Serious: Yes (Death, Hospitalization)
  Sender: FDA-Public Use
  Company Number: US-B.I. PHARMACEUTICALS,INC./RIDGEFIELD-2013-BI-08813BP

PATIENT
  Age: 91 Year
  Sex: Male
  Weight: 77.11 kg

DRUGS (2)
  1. PRADAXA [Suspect]
     Dates: start: 201101, end: 201103
  2. METOPROLOL [Concomitant]

REACTIONS (1)
  - Haemorrhage intracranial [Fatal]
